FAERS Safety Report 9269083 (Version 9)
Quarter: 2013Q4

REPORT INFORMATION
  Report Type: Report from Study
  Country: US (occurrence: US)
  Receive Date: 20130503
  Receipt Date: 20131125
  Transmission Date: 20140711
  Serious: Yes (Hospitalization)
  Sender: FDA-Public Use
  Company Number: US-009507513-1304USA014699

PATIENT
  Age: 52 Year
  Sex: Male
  Weight: 58.5 kg

DRUGS (13)
  1. BOCEPREVIR [Suspect]
     Indication: HEPATITIS C
     Dosage: 800 MG, TID
     Route: 048
     Dates: start: 20130403
  2. PEGINTERFERON ALFA-2B [Suspect]
     Indication: HEPATITIS C
     Dosage: REDIPEN, 120 MICROGRAM, QW
     Route: 058
     Dates: start: 20130204, end: 20130331
  3. PEGINTERFERON ALFA-2B [Suspect]
     Dosage: REDIPEN, 64 MICROGRAM, ONCE A WEEK
     Route: 058
     Dates: start: 20130401
  4. RIBAVIRIN [Suspect]
     Indication: HEPATITIS C
     Dosage: 400 MG, BID
     Route: 048
     Dates: start: 20130204, end: 20130424
  5. RIBAVIRIN [Suspect]
     Dosage: 400 MG IN AM AND 200 MG IN PM
     Route: 048
     Dates: start: 20130425
  6. ATRIPLA [Concomitant]
     Indication: HIV INFECTION
     Dosage: HS - AT BEDTIME
     Route: 048
     Dates: start: 200904, end: 20130421
  7. PRINIVIL [Concomitant]
     Indication: HYPERTENSION
     Dosage: QD - EVERY DAY
     Route: 048
     Dates: start: 201104, end: 20130422
  8. PRAVASTATIN SODIUM [Concomitant]
     Indication: HYPERLIPIDAEMIA
     Dosage: HS - AT BEDTIME
     Route: 048
     Dates: start: 201104, end: 20130421
  9. PRAVASTATIN SODIUM [Concomitant]
     Dosage: HS - AT BEDTIME
     Route: 048
     Dates: start: 20130423
  10. AMLODIPINE [Concomitant]
     Indication: HYPERTENSION
     Dosage: QD - EVERY TIME
     Route: 048
     Dates: start: 201104, end: 20130422
  11. OMEPRAZOLE [Concomitant]
     Indication: GASTROOESOPHAGEAL REFLUX DISEASE
     Dosage: BID - TWICE A DAY
     Route: 048
     Dates: start: 201104, end: 20130422
  12. BRIMONIDINE TARTRATE [Concomitant]
     Indication: GLAUCOMA
     Dosage: BID - TWICE A DAY
     Route: 048
     Dates: start: 201104, end: 20130422
  13. PROMETHAZINE [Concomitant]
     Indication: NAUSEA
     Dosage: Q6H-EVERY 6 HOURS, PRN
     Route: 048
     Dates: start: 20130410, end: 20130422

REACTIONS (1)
  - Renal failure acute [Recovered/Resolved]
